FAERS Safety Report 17560312 (Version 1)
Quarter: 2020Q1

REPORT INFORMATION
  Report Type: Spontaneous
  Country: NL (occurrence: NL)
  Receive Date: 20200319
  Receipt Date: 20200319
  Transmission Date: 20200409
  Serious: Yes (Disabling)
  Sender: FDA-Public Use
  Company Number: NVSC2020NL076015

PATIENT
  Sex: Male
  Weight: 80 kg

DRUGS (1)
  1. CEFTRIAXONE SODIUM. [Suspect]
     Active Substance: CEFTRIAXONE SODIUM
     Indication: PRODUCT USED FOR UNKNOWN INDICATION
     Dosage: 1 DF (IK WEET HET ZELF NIET, 1 KEER, DOORMIDDEL VAN INJECTIE)
     Route: 065
     Dates: start: 20170328

REACTIONS (2)
  - Tinnitus [Not Recovered/Not Resolved]
  - Proctalgia [Not Recovered/Not Resolved]
